FAERS Safety Report 13619288 (Version 1)
Quarter: 2017Q2

REPORT INFORMATION
  Report Type: Spontaneous
  Country: US (occurrence: US)
  Receive Date: 20170606
  Receipt Date: 20170606
  Transmission Date: 20170830
  Serious: Yes (Life-Threatening, Hospitalization, Other)
  Sender: FDA-Public Use
  Company Number: None

PATIENT
  Age: 69 Year
  Sex: Male
  Weight: 57 kg

DRUGS (4)
  1. ALBUTEROL/IPRATROPIUM [Concomitant]
     Active Substance: ALBUTEROL\IPRATROPIUM
  2. LIDOCAINE. [Concomitant]
     Active Substance: LIDOCAINE
  3. NEOSPORIN [Concomitant]
     Active Substance: BACITRACIN ZINC\NEOMYCIN SULFATE\POLYMYXIN B SULFATE
  4. LEVOFLOXACIN. [Suspect]
     Active Substance: LEVOFLOXACIN
     Indication: SEPSIS
     Dosage: ?          OTHER FREQUENCY:X 1 DOSE; INTRAVENOUS (NOT OTHERWISE SPECIFIED)  ?
     Route: 042
     Dates: start: 20170601, end: 20170601

REACTIONS (2)
  - Dysphagia [None]
  - Lip swelling [None]

NARRATIVE: CASE EVENT DATE: 20170601
